FAERS Safety Report 20417600 (Version 2)
Quarter: 2022Q1

REPORT INFORMATION
  Report Type: Report from Study
  Country: CA (occurrence: CA)
  Receive Date: 20220202
  Receipt Date: 20220224
  Transmission Date: 20220423
  Serious: Yes (Other)
  Sender: FDA-Public Use
  Company Number: CA-ABBVIE-22K-028-4259331-00

PATIENT
  Sex: Female

DRUGS (1)
  1. RINVOQ [Suspect]
     Active Substance: UPADACITINIB
     Indication: Rheumatoid arthritis
     Route: 048
     Dates: start: 20210309, end: 20220209

REACTIONS (5)
  - Cataract [Unknown]
  - Lens disorder [Unknown]
  - Blood test abnormal [Unknown]
  - Glaucoma [Unknown]
  - Eye pruritus [Unknown]
